FAERS Safety Report 6338116-5 (Version None)
Quarter: 2009Q3

REPORT INFORMATION
  Report Type: 
  Country: None (occurrence: None)
  Receive Date: 20090902
  Receipt Date: 20090831
  Transmission Date: 20100115
  Serious: Yes (Death)
  Sender: FDA-Public Use
  Company Number: PHEH2009US10069

PATIENT
  Sex: Male

DRUGS (12)
  1. EXJADE [Suspect]
     Indication: COLON CANCER
     Dosage: 1500 MG, QD
     Route: 048
     Dates: start: 20081126, end: 20090527
  2. ASPIRIN [Concomitant]
     Indication: BLOOD PRESSURE
     Dosage: 81 MG, UNK
  3. ATIVAN [Concomitant]
     Indication: NAUSEA
     Dosage: 1.5 MG, UNK
     Route: 048
     Dates: start: 20070101
  4. ATIVAN [Concomitant]
     Indication: ANXIETY
  5. ATIVAN [Concomitant]
     Indication: INSOMNIA
  6. COMBIVIR [Concomitant]
     Indication: HIV ANTIBODY POSITIVE
     Dosage: 150/300 MG
     Route: 048
     Dates: start: 20070101
  7. COMPAZINE [Concomitant]
     Indication: NAUSEA
     Dosage: 10 MG, UNK
     Route: 048
     Dates: start: 20070101
  8. LEVAQUIN [Concomitant]
     Indication: INFECTION
     Dosage: 500 MG, UNK
     Route: 048
     Dates: start: 20070101
  9. SUSTIVA [Concomitant]
     Dosage: 600 MG, UNK
     Route: 048
     Dates: start: 20070101
  10. ZOFRAN [Concomitant]
     Indication: NAUSEA
     Dosage: 600 MG, UNK
     Route: 048
     Dates: start: 20070101
  11. ZOLPIDEM [Concomitant]
     Indication: INSOMNIA
     Route: 048
  12. POTASSIUM CHLORIDE [Concomitant]
     Dosage: 20 MEQ, UNK
     Route: 048

REACTIONS (4)
  - MALIGNANT NEOPLASM PROGRESSION [None]
  - METASTASES TO CENTRAL NERVOUS SYSTEM [None]
  - METASTASES TO LIVER [None]
  - METASTASES TO LUNG [None]
